FAERS Safety Report 8804404 (Version 1)
Quarter: 2012Q4

REPORT INFORMATION
  Report Type: 
  Country: BR (occurrence: BR)
  Receive Date: 20120924
  Receipt Date: 20120924
  Transmission Date: 20130627
  Serious: Yes (Other)
  Sender: FDA-Public Use
  Company Number: BR-ABBOTT-12P-020-0972565-00

PATIENT
  Sex: Male

DRUGS (4)
  1. TECTA [Suspect]
     Indication: GASTROOESOPHAGEAL REFLUX DISEASE
     Route: 048
     Dates: start: 20120723, end: 20120819
  2. TECTA [Suspect]
     Route: 048
     Dates: start: 20120822
  3. PURAN T4 [Concomitant]
     Indication: HYPOTHYROIDISM
     Route: 048
     Dates: start: 2011
  4. DOMPERIDONE [Concomitant]
     Indication: GASTROOESOPHAGEAL REFLUX DISEASE
     Route: 048
     Dates: start: 201207

REACTIONS (5)
  - Blood pressure increased [Recovered/Resolved]
  - Depressed mood [Recovered/Resolved]
  - Somnolence [Recovered/Resolved]
  - Fatigue [Recovered/Resolved]
  - Headache [Recovered/Resolved]
